FAERS Safety Report 14161593 (Version 1)
Quarter: 2017Q4

REPORT INFORMATION
  Report Type: Spontaneous
  Country: US (occurrence: US)
  Receive Date: 20171106
  Receipt Date: 20171106
  Transmission Date: 20180321
  Serious: No
  Sender: FDA-Public Use
  Company Number: US-LEXICON PHARMACEUTICALS, INC-17-1606-01015

PATIENT
  Sex: Male

DRUGS (4)
  1. TELOTRISTAT ETHYL [Suspect]
     Active Substance: TELOTRISTAT ETHYL
     Indication: METASTASIS
  2. TELOTRISTAT ETHYL [Suspect]
     Active Substance: TELOTRISTAT ETHYL
     Indication: NEUROENDOCRINE TUMOUR
     Route: 048
     Dates: start: 20170818
  3. TEMAZEPAM. [Concomitant]
     Active Substance: TEMAZEPAM
  4. SANDOSTATIN [Concomitant]
     Active Substance: OCTREOTIDE ACETATE

REACTIONS (2)
  - Nausea [Unknown]
  - Peripheral swelling [Unknown]

NARRATIVE: CASE EVENT DATE: 2017
